FAERS Safety Report 5889477-2 (Version None)
Quarter: 2008Q3

REPORT INFORMATION
  Report Type: 
  Country: None (occurrence: None)
  Receive Date: 20080919
  Receipt Date: 20080909
  Transmission Date: 20090109
  Serious: Yes (Other)
  Sender: FDA-Public Use
  Company Number: US-ELI_LILLY_AND_COMPANY-US200809002112

PATIENT
  Sex: Male

DRUGS (1)
  1. HUMALOG [Suspect]
     Route: 058

REACTIONS (3)
  - BLOOD GLUCOSE INCREASED [None]
  - DIABETIC HYPERGLYCAEMIC COMA [None]
  - FATIGUE [None]
